FAERS Safety Report 7370497-6 (Version None)
Quarter: 2011Q1

REPORT INFORMATION
  Report Type: 
  Country: None (occurrence: None)
  Receive Date: 20110314
  Receipt Date: 20110304
  Transmission Date: 20110831
  Serious: Yes (Hospitalization)
  Sender: FDA-Public Use
  Company Number: LEO-2011-00183

PATIENT
  Age: 78 Year
  Sex: Female
  Weight: 60 kg

DRUGS (11)
  1. IMOVANE (ZOPICLONE) [Concomitant]
  2. MICARDIS HCT [Concomitant]
  3. TAHOR (ATORAVASTATIN CALCIUM) (10 MILLIGRAM) [Concomitant]
  4. TRAMADOL HCL [Concomitant]
  5. INNOHEP [Suspect]
     Indication: DEEP VEIN THROMBOSIS
     Dosage: 1 DOSAGE FORMS (4500 IU,1 D),SUBCUTANEOUS ; SUBCUTANEOUS
     Route: 058
     Dates: start: 20110218
  6. INNOHEP [Suspect]
     Indication: KNEE ARTHROPLASTY
     Dosage: 1 DOSAGE FORMS (4500 IU,1 D),SUBCUTANEOUS ; SUBCUTANEOUS
     Route: 058
     Dates: start: 20110218
  7. INNOHEP [Suspect]
     Indication: DEEP VEIN THROMBOSIS
     Dosage: 1 DOSAGE FORMS (4500 IU,1 D),SUBCUTANEOUS ; SUBCUTANEOUS
     Route: 058
     Dates: start: 20110209
  8. INNOHEP [Suspect]
     Indication: KNEE ARTHROPLASTY
     Dosage: 1 DOSAGE FORMS (4500 IU,1 D),SUBCUTANEOUS ; SUBCUTANEOUS
     Route: 058
     Dates: start: 20110209
  9. NEXIUM [Concomitant]
  10. DOLIPRANE (PARACETAMOL) (500 MILLIGRAM) [Concomitant]
  11. PREVISCAN (PENTOXIFYLLINE) [Suspect]
     Indication: DEEP VEIN THROMBOSIS
     Dosage: (1D)

REACTIONS (2)
  - HAEMATOMA [None]
  - DEEP VEIN THROMBOSIS [None]
